FAERS Safety Report 8329078-X (Version None)
Quarter: 2012Q2

REPORT INFORMATION
  Report Type: 
  Country: None (occurrence: None)
  Receive Date: 20120430
  Receipt Date: 20120417
  Transmission Date: 20120825
  Serious: Yes (Other)
  Sender: FDA-Public Use
  Company Number: 2012MA005000

PATIENT
  Age: 37 Year
  Sex: Female

DRUGS (1)
  1. KADIAN [Suspect]
     Indication: BACK PAIN
     Dosage: PO
     Route: 048

REACTIONS (2)
  - PREGNANCY [None]
  - MATERNAL EXPOSURE DURING PREGNANCY [None]
